FAERS Safety Report 22235593 (Version 1)
Quarter: 2023Q2

REPORT INFORMATION
  Report Type: Spontaneous
  Country: DE (occurrence: DE)
  Receive Date: 20230420
  Receipt Date: 20230420
  Transmission Date: 20230721
  Serious: Yes (Other)
  Sender: FDA-Public Use
  Company Number: DE-DCGMA-23200690

PATIENT
  Age: 30 Year
  Sex: Female

DRUGS (8)
  1. CIPROFLOXACIN [Suspect]
     Active Substance: CIPROFLOXACIN
     Dates: start: 20151130
  2. INFLUENZA VIRUS VACCINE [Suspect]
     Active Substance: INFLUENZA VIRUS VACCINE
     Indication: Immunisation
  3. DI TE PER ANATOXAL [Suspect]
     Active Substance: DIPHTHERIA AND TETANUS TOXOIDS AND PERTUSSIS VACCINE ADSORBED
     Indication: Immunisation
  4. BCG VACCINE [Suspect]
     Active Substance: BCG VACCINE
     Indication: Immunisation
  5. DIPHTHERIA\HAEMB\HEPATITIS B\PERTUSSIS\TETANUS VACCINE NOS [Suspect]
     Active Substance: DIPHTHERIA AND TETANUS TOXOIDS AND PERTUSSIS VACCINE AND HAEMOPHILUS B AND HEPATITIS B VIRUS VACCINE
     Indication: Immunisation
  6. HEPATITIS B VIRUS VACCINE [Suspect]
     Active Substance: HEPATITIS B VIRUS VACCINE
     Indication: Immunisation
  7. MEASLES-MUMPS-RUBELLA VIRUS VACCINE [Suspect]
     Active Substance: MEASLES-MUMPS-RUBELLA VIRUS VACCINE
     Indication: Immunisation
  8. NORFLOXACIN [Suspect]
     Active Substance: NORFLOXACIN
     Indication: Product used for unknown indication
     Dates: start: 20151113

REACTIONS (1)
  - Vaccination complication [Unknown]
